FAERS Safety Report 11628263 (Version 1)
Quarter: 2015Q4

REPORT INFORMATION
  Report Type: Spontaneous
  Country: US (occurrence: None)
  Receive Date: 20151013
  Receipt Date: 20151013
  Transmission Date: 20160304
  Serious: Yes (Disabling)
  Sender: FDA-Public Use
  Company Number: None

PATIENT
  Age: 50 Year
  Sex: Female
  Weight: 79.38 kg

DRUGS (6)
  1. LEVOFLAXIN [Suspect]
     Active Substance: LEVOFLOXACIN
     Indication: EAR INFECTION
  2. WALKING ORTHOPEDIC CAST/BOOT [Concomitant]
  3. TRAMADOL. [Concomitant]
     Active Substance: TRAMADOL
  4. DICLOFENAC [Concomitant]
     Active Substance: DICLOFENAC
  5. CRUTCHES [Concomitant]
  6. TYLENOL [Concomitant]
     Active Substance: ACETAMINOPHEN

REACTIONS (11)
  - Hypoaesthesia [None]
  - Swelling [None]
  - Impaired work ability [None]
  - Rash [None]
  - Paraesthesia [None]
  - Plantar fasciitis [None]
  - Bursitis [None]
  - Arthralgia [None]
  - Tendonitis [None]
  - Pain in extremity [None]
  - Tendon disorder [None]

NARRATIVE: CASE EVENT DATE: 20151009
